FAERS Safety Report 5221114-2 (Version None)
Quarter: 2007Q1

REPORT INFORMATION
  Report Type: 
  Country: None (occurrence: None)
  Receive Date: 20070126
  Receipt Date: 20060406
  Transmission Date: 20070707
  Serious: No
  Sender: FDA-Public Use
  Company Number: US-BRISTOL-MYERS SQUIBB COMPANY-13339536

PATIENT
  Age: 6 Year
  Sex: Female

DRUGS (1)
  1. CEFZIL [Suspect]
     Route: 048

REACTIONS (1)
  - DYSGEUSIA [None]
